FAERS Safety Report 13046539 (Version 2)
Quarter: 2016Q4

REPORT INFORMATION
  Report Type: Report from Study
  Country: None (occurrence: BE)
  Receive Date: 20161220
  Receipt Date: 20161230
  Transmission Date: 20170207
  Serious: Yes (Hospitalization)
  Sender: FDA-Public Use
  Company Number: BE-ABBVIE-16P-013-1813793-00

PATIENT
  Sex: Male

DRUGS (4)
  1. DUODOPA [Suspect]
     Active Substance: CARBIDOPA\LEVODOPA
     Indication: PARKINSON^S DISEASE
     Dosage: UNKNOWN DOSAGE
     Route: 050
     Dates: start: 20080303, end: 20080304
  2. DUODOPA [Suspect]
     Active Substance: CARBIDOPA\LEVODOPA
     Dosage: AM= 6.3 ML; CD= 2.3 ML/H DURING 16 HRS; ED= 1.5 ML
     Route: 050
     Dates: start: 20160926
  3. DUODOPA [Suspect]
     Active Substance: CARBIDOPA\LEVODOPA
     Dosage: DOSES CONTINUOUSLY MONITORED AND ADAPTED
     Route: 050
     Dates: start: 20120417, end: 20160926
  4. DUODOPA [Suspect]
     Active Substance: CARBIDOPA\LEVODOPA
     Dosage: AM= 17 ML ;CD= 5.5 ML/H DURING 16 HRS; ED= 6 ML
     Route: 050
     Dates: start: 20080304, end: 20120417

REACTIONS (1)
  - Pneumonia [Recovering/Resolving]
